FAERS Safety Report 21107231 (Version 2)
Quarter: 2022Q3

REPORT INFORMATION
  Report Type: Spontaneous
  Country: DE (occurrence: DE)
  Receive Date: 20220720
  Receipt Date: 20220804
  Transmission Date: 20221026
  Serious: Yes (Death, Hospitalization)
  Sender: FDA-Public Use
  Company Number: DE-TEVA-2022-DE-2055654

PATIENT
  Age: 37 Year
  Sex: Female

DRUGS (15)
  1. PACLITAXEL [Suspect]
     Active Substance: PACLITAXEL
     Indication: Small cell carcinoma
     Dosage: RECEIVED THREE CYCLES.
     Route: 065
     Dates: start: 201610
  2. PACLITAXEL [Suspect]
     Active Substance: PACLITAXEL
     Indication: Vaginal cancer
  3. ZOLEDRONIC ACID [Suspect]
     Active Substance: ZOLEDRONIC ACID
     Indication: Small cell carcinoma
     Dosage: MONTHLY
     Route: 065
     Dates: start: 201612
  4. ZOLEDRONIC ACID [Suspect]
     Active Substance: ZOLEDRONIC ACID
     Indication: Metastases to bone
  5. ZOLEDRONIC ACID [Suspect]
     Active Substance: ZOLEDRONIC ACID
     Indication: Vaginal cancer
  6. CARBOPLATIN [Suspect]
     Active Substance: CARBOPLATIN
     Indication: Small cell carcinoma
     Dosage: RECEIVED THREE CYCLES.
     Route: 065
     Dates: start: 201610
  7. CARBOPLATIN [Suspect]
     Active Substance: CARBOPLATIN
     Indication: Vaginal cancer
  8. CAMPTOTHECIN [Suspect]
     Active Substance: CAMPTOTHECIN
     Indication: Small cell carcinoma
     Dosage: RECEIVED FOUR CYCLES
     Route: 065
     Dates: start: 201612
  9. CAMPTOTHECIN [Suspect]
     Active Substance: CAMPTOTHECIN
     Indication: Vaginal cancer
  10. IRINOTECAN [Suspect]
     Active Substance: IRINOTECAN
     Indication: Small cell carcinoma
     Dosage: WEEKLY; RECEIVED FOUR CYCLES
     Route: 065
  11. IRINOTECAN [Suspect]
     Active Substance: IRINOTECAN
     Indication: Metastases to bone
  12. IRINOTECAN [Suspect]
     Active Substance: IRINOTECAN
     Indication: Vaginal cancer
  13. FOSAPREPITANT [Concomitant]
     Active Substance: FOSAPREPITANT
     Indication: Vomiting
     Route: 065
  14. DEXAMETHASONE [Concomitant]
     Active Substance: DEXAMETHASONE
     Indication: Antiinflammatory therapy
     Route: 065
  15. PALONOSETRON [Concomitant]
     Active Substance: PALONOSETRON
     Indication: Prophylaxis of nausea and vomiting
     Route: 065

REACTIONS (1)
  - Drug ineffective [Fatal]
